FAERS Safety Report 4667873-9 (Version None)
Quarter: 2005Q2

REPORT INFORMATION
  Report Type: 
  Country: None (occurrence: None)
  Receive Date: 20050520
  Receipt Date: 20050412
  Transmission Date: 20051028
  Serious: Yes (Death)
  Sender: FDA-Public Use
  Company Number: DE-ROCHE-401756

PATIENT
  Age: 50 Year
  Sex: Female
  Weight: 100 kg

DRUGS (3)
  1. PEG-INTERFERON ALFA 2A (RO 25-8310) [Suspect]
     Dosage: DATE OF LAST DOSE PRIOR TO SAE WAS REPORTED AS 06 APRIL 2005.
     Route: 058
     Dates: start: 20050209, end: 20050412
  2. RIBAVIRIN [Suspect]
     Dosage: DATE OF LAST DOSE PRIOR TO SAE WAS REPORTED AS 11 APRIL 2005.
     Route: 048
     Dates: start: 20050209, end: 20050412
  3. PLACEBO [Suspect]
     Dosage: DOSE REPORTED AS DAILY. DATE OF LAST DOSE PRIOR TO SAE WAS REPORTED AS 11 APRIL 2005.
     Route: 048
     Dates: start: 20050128, end: 20050412

REACTIONS (3)
  - CEREBRAL HAEMORRHAGE [None]
  - HEADACHE [None]
  - VOMITING [None]
